FAERS Safety Report 5584202-7 (Version None)
Quarter: 2008Q1

REPORT INFORMATION
  Report Type: 
  Country: None (occurrence: None)
  Receive Date: 20080103
  Receipt Date: 20071221
  Transmission Date: 20080703
  Serious: Yes (Other)
  Sender: FDA-Public Use
  Company Number: MC200700754

PATIENT
  Age: 55 Year
  Sex: Female

DRUGS (3)
  1. ANGIOMAX [Suspect]
     Indication: PERCUTANEOUS CORONARY INTERVENTION
     Dosage: 0.75 MG/KG, SINGLE, IV BOLUS; 1.75 MG/KG, HR, INTRAVENOUS
     Route: 040
     Dates: start: 20071219, end: 20071219
  2. IV CONTRAST DYE () [Suspect]
     Dosage: INTRAVENOUS
     Route: 042
     Dates: start: 20071219
  3. HEPARIN [Concomitant]

REACTIONS (6)
  - CONTRAST MEDIA ALLERGY [None]
  - DRUG HYPERSENSITIVITY [None]
  - ELECTROCARDIOGRAM ST SEGMENT DEPRESSION [None]
  - HYPOTENSION [None]
  - MUSCLE SPASMS [None]
  - TACHYCARDIA [None]
